FAERS Safety Report 14669565 (Version 1)
Quarter: 2018Q1

REPORT INFORMATION
  Report Type: Spontaneous
  Country: US (occurrence: US)
  Receive Date: 20180321
  Receipt Date: 20180321
  Transmission Date: 20180509
  Serious: Yes (Death)
  Sender: FDA-Public Use
  Company Number: None

PATIENT
  Age: 61 Year
  Sex: Male
  Weight: 61 kg

DRUGS (13)
  1. ACETAMINOPHEN. [Concomitant]
     Active Substance: ACETAMINOPHEN
  2. MORPHINE [Concomitant]
     Active Substance: MORPHINE
  3. MORPHINE CONCENTRATED SOLUTION [Concomitant]
  4. ALPROZOLAM [Concomitant]
     Active Substance: ALPRAZOLAM
  5. BISACODYL. [Concomitant]
     Active Substance: BISACODYL
  6. POLYETHYLENE GLYCOL [Concomitant]
     Active Substance: POLYETHYLENE GLYCOLS
  7. APIXABAN [Suspect]
     Active Substance: APIXABAN
     Indication: JUGULAR VEIN THROMBOSIS
     Dosage: BLINDED APIXABAN BID PO
     Route: 048
     Dates: start: 20171031
  8. ATROPINE DROPS [Concomitant]
  9. DOCUSATE [Concomitant]
     Active Substance: DOCUSATE
  10. ONDANSETRON [Concomitant]
     Active Substance: ONDANSETRON
  11. HALOPERIDOL. [Concomitant]
     Active Substance: HALOPERIDOL
  12. LORAZEPAM. [Concomitant]
     Active Substance: LORAZEPAM
  13. SENNOSIDES. [Concomitant]
     Active Substance: SENNOSIDES

REACTIONS (1)
  - Disease progression [None]

NARRATIVE: CASE EVENT DATE: 20180313
